FAERS Safety Report 8975708 (Version 2)
Quarter: 2014Q2

REPORT INFORMATION
  Report Type: Spontaneous
  Country: US (occurrence: US)
  Receive Date: 20121219
  Receipt Date: 20131024
  Transmission Date: 20141212
  Serious: No
  Sender: FDA-Public Use
  Company Number: US-PFIZER INC-2012313798

PATIENT
  Sex: Female

DRUGS (1)
  1. SOLU-CORTEF [Suspect]
     Dosage: UNK, 3X/DAY

REACTIONS (1)
  - Gastritis [Unknown]
